FAERS Safety Report 8141369-4 (Version None)
Quarter: 2012Q1

REPORT INFORMATION
  Report Type: 
  Country: None (occurrence: None)
  Receive Date: 20120216
  Receipt Date: 20120209
  Transmission Date: 20120608
  Serious: Yes (Life-Threatening, Hospitalization, Other)
  Sender: FDA-Public Use
  Company Number: PHHY2012DE011574

PATIENT
  Sex: Male
  Weight: 90 kg

DRUGS (10)
  1. RASILEZ HCT [Suspect]
     Dosage: 1 DF, (300 MG ALSIK AND 25MG HYDRO0 DAILY
     Route: 048
     Dates: start: 20110118
  2. HMG COA REDUCTASE INHIBITORS (STATINS) [Concomitant]
  3. MOXONIDINE [Suspect]
     Indication: HYPERTENSION
     Dosage: 0.6 MG
     Route: 048
     Dates: start: 20070101
  4. EXFORGE [Suspect]
     Indication: HYPERTENSION
     Dosage: 1 DF(160 MG VALS AND 10 MG HYDRO( DAILY
     Route: 048
     Dates: start: 20090505
  5. METFORMIN HCL [Suspect]
     Indication: DIABETES MELLITUS
     Dosage: 2000 MG, PER DAY
  6. CARVEDILOL [Suspect]
     Indication: HYPERTENSION
     Dosage: 50 MG, PER DAY
     Route: 048
     Dates: start: 20100101
  7. ALPHA-ADRENOCEPTOR BLOCKING AGENTS [Concomitant]
  8. VILDAGLIPTIN [Suspect]
     Indication: DIABETES MELLITUS
     Dosage: 100 MG
     Route: 048
     Dates: start: 20110101
  9. PENTAERYTHRITOL TETRANITRATE [Suspect]
     Indication: HYPERTENSION
     Dosage: 160 MG, PER DAY
     Route: 048
     Dates: start: 20040101
  10. RASILEZ HCT [Suspect]
     Indication: HYPERTENSION
     Dosage: 1 DF, (150 MG ALISK AND 25 MG HYDRO) DAILY
     Route: 048
     Dates: start: 20100817, end: 20120119

REACTIONS (4)
  - MYOCARDIAL INFARCTION [None]
  - BLOOD TRIGLYCERIDES INCREASED [None]
  - ANGINA PECTORIS [None]
  - BLOOD PRESSURE DIASTOLIC DECREASED [None]
